FAERS Safety Report 9819267 (Version 2)
Quarter: 2014Q1

REPORT INFORMATION
  Report Type: Spontaneous
  Country: US (occurrence: US)
  Receive Date: 20140115
  Receipt Date: 20140115
  Transmission Date: 20141002
  Serious: Yes (Disabling)
  Sender: FDA-Public Use
  Company Number: US-GE HEALTHCARE MEDICAL DIAGNOSTICS-OSCN-PR-0806S-0402

PATIENT
  Age: 56 Year
  Sex: Male

DRUGS (6)
  1. OMNISCAN [Suspect]
     Indication: PRODUCT USED FOR UNKNOWN INDICATION
     Route: 042
     Dates: start: 20041104, end: 20041104
  2. OMNISCAN [Suspect]
     Route: 042
     Dates: start: 20041203, end: 20041203
  3. OMNISCAN [Suspect]
     Dates: start: 20050915, end: 20050915
  4. OMNISCAN [Suspect]
     Dates: start: 20051013, end: 20051013
  5. OMNISCAN [Suspect]
     Dates: start: 20051208, end: 20051208
  6. EPOGEN [Concomitant]
     Indication: PRODUCT USED FOR UNKNOWN INDICATION

REACTIONS (1)
  - Nephrogenic systemic fibrosis [Recovering/Resolving]
